FAERS Safety Report 12316324 (Version 1)
Quarter: 2016Q2

REPORT INFORMATION
  Report Type: Spontaneous
  Country: US (occurrence: US)
  Receive Date: 20160428
  Receipt Date: 20160428
  Transmission Date: 20160815
  Serious: Yes (Other)
  Sender: FDA-Public Use
  Company Number: PHHY2016US054770

PATIENT
  Age: 36 Year
  Sex: Female

DRUGS (2)
  1. HYDROFLUMETHIAZIDE [Suspect]
     Active Substance: HYDROFLUMETHIAZIDE
     Indication: DIURETIC THERAPY
     Route: 065
  2. HYDROCHLOROTHIAZIDE. [Suspect]
     Active Substance: HYDROCHLOROTHIAZIDE
     Indication: DIURETIC THERAPY
     Route: 065

REACTIONS (2)
  - Intentional product misuse [Unknown]
  - Hypokalaemia [Unknown]
